FAERS Safety Report 9060270 (Version 1)
Quarter: 2013Q1

REPORT INFORMATION
  Report Type: Spontaneous
  Country: US (occurrence: None)
  Receive Date: 20130207
  Receipt Date: 20130207
  Transmission Date: 20140127
  Serious: Yes (Other)
  Sender: FDA-Public Use
  Company Number: None

PATIENT
  Age: 72 Year
  Sex: Female
  Weight: 55.79 kg

DRUGS (2)
  1. IBANDRONATE SODIUM TABLET, 150MG, APOTEX CORP. [Suspect]
     Indication: OSTEOPENIA
     Dates: start: 20120804
  2. FOSAMAX [Concomitant]

REACTIONS (3)
  - Pain in extremity [None]
  - Bursitis [None]
  - Pain in extremity [None]
